FAERS Safety Report 8697646 (Version 4)
Quarter: 2012Q4

REPORT INFORMATION
  Report Type: 
  Country: ES (occurrence: ES)
  Receive Date: 20120801
  Receipt Date: 20121102
  Transmission Date: 20130627
  Serious: Yes (Other)
  Sender: FDA-Public Use
  Company Number: ES-ELI_LILLY_AND_COMPANY-ES201207008011

PATIENT
  Age: 86 Year
  Sex: Female

DRUGS (2)
  1. FORSTEO [Suspect]
     Dosage: UNK
     Dates: start: 20120719
  2. FORSTEO [Suspect]
     Dosage: UNK
     Dates: start: 20120719

REACTIONS (3)
  - Neck mass [Not Recovered/Not Resolved]
  - Neck mass [Unknown]
  - Haematoma [Not Recovered/Not Resolved]
